FAERS Safety Report 14873079 (Version 1)
Quarter: 2018Q2

REPORT INFORMATION
  Report Type: Spontaneous
  Country: US (occurrence: US)
  Receive Date: 20180510
  Receipt Date: 20180510
  Transmission Date: 20180711
  Serious: Yes (Life-Threatening, Hospitalization, Other)
  Sender: FDA-Public Use
  Company Number: US-AMGEN-USASL2018060339

PATIENT
  Sex: Female

DRUGS (5)
  1. ENBREL [Suspect]
     Active Substance: ETANERCEPT
     Indication: EXPOSURE DURING PREGNANCY
     Dosage: 25 MG, UNK (4 VIALS A WEEK)
     Route: 064
  2. ENBREL [Suspect]
     Active Substance: ETANERCEPT
     Dosage: 25 MG, UNK (2 VIALS A WEEK (50MG)
     Route: 064
  3. HYDROCODONE [Concomitant]
     Active Substance: HYDROCODONE
     Indication: EXPOSURE DURING PREGNANCY
     Dosage: UNK (5/325 1 TO 2 A DAY)
     Route: 064
  4. ENBREL [Suspect]
     Active Substance: ETANERCEPT
     Dosage: 25 MG, QWK
     Route: 064
  5. VITAMIN B [Concomitant]
     Active Substance: VITAMIN B
     Indication: EXPOSURE DURING PREGNANCY
     Dosage: UNK
     Route: 064

REACTIONS (2)
  - Unevaluable event [Unknown]
  - Apparent death [Recovered/Resolved]
